FAERS Safety Report 19359537 (Version 3)
Quarter: 2021Q3

REPORT INFORMATION
  Report Type: Report from Study
  Country: CO (occurrence: CO)
  Receive Date: 20210602
  Receipt Date: 20210803
  Transmission Date: 20211014
  Serious: Yes (Death, Hospitalization, Other)
  Sender: FDA-Public Use
  Company Number: CO-ASTELLAS-2021US019687

PATIENT
  Age: 74 Year
  Sex: Male
  Weight: 110 kg

DRUGS (3)
  1. ENZALUTAMIDE [Suspect]
     Active Substance: ENZALUTAMIDE
     Indication: PROSTATE CANCER
     Route: 048
     Dates: end: 20210718
  2. ENZALUTAMIDE [Suspect]
     Active Substance: ENZALUTAMIDE
     Indication: HORMONE-REFRACTORY PROSTATE CANCER
     Route: 048
     Dates: start: 20080913, end: 20210524
  3. CORONAVAC [Suspect]
     Active Substance: INVESTIGATIONAL PRODUCT
     Indication: COVID-19 IMMUNISATION
     Dosage: UNK UNK, UNKNOWN FREQ.
     Route: 065
     Dates: start: 20210717

REACTIONS (11)
  - Decreased appetite [Recovering/Resolving]
  - Blood pressure increased [Fatal]
  - Respiratory failure [Fatal]
  - Gastritis [Recovering/Resolving]
  - Fatigue [Recovering/Resolving]
  - Chest pain [Fatal]
  - Oxygen saturation decreased [Fatal]
  - Myocardial infarction [Fatal]
  - Cholecystitis [Recovering/Resolving]
  - Hyperhidrosis [Fatal]
  - Feeling abnormal [Unknown]

NARRATIVE: CASE EVENT DATE: 202103
